FAERS Safety Report 11516444 (Version 1)
Quarter: 2015Q3

REPORT INFORMATION
  Report Type: Spontaneous
  Country: US (occurrence: None)
  Receive Date: 20150915
  Receipt Date: 20150915
  Transmission Date: 20151125
  Serious: No
  Sender: FDA-Public Use
  Company Number: SOM-4278-AE

PATIENT
  Age: 61 Year
  Sex: Female
  Weight: 96.62 kg

DRUGS (1)
  1. CEFTIBUTEN. [Suspect]
     Active Substance: CEFTIBUTEN
     Indication: SINUSITIS
     Dates: start: 20150814, end: 20150824

REACTIONS (3)
  - Drug ineffective [None]
  - Secretion discharge [None]
  - Sinusitis [None]

NARRATIVE: CASE EVENT DATE: 20150824
